FAERS Safety Report 8941385 (Version 2)
Quarter: 2013Q1

REPORT INFORMATION
  Report Type: Spontaneous
  Country: US (occurrence: US)
  Receive Date: 20121203
  Receipt Date: 20130325
  Transmission Date: 20140127
  Serious: No
  Sender: FDA-Public Use
  Company Number: US-PFIZER INC-2012299895

PATIENT
  Age: 37 Year
  Sex: Female
  Weight: 88.44 kg

DRUGS (5)
  1. GEODON [Suspect]
     Indication: PANIC DISORDER
     Dosage: 40 MG, ONCE DAILY IN THE MORNING FOR 3 DAYS
     Route: 048
     Dates: start: 20121013, end: 20121015
  2. GEODON [Suspect]
     Indication: DEPRESSION
     Dosage: 80 MG,ONCE DAILY IN THE MORNING FOR 3 DAYS
     Dates: start: 20121016, end: 20121115
  3. CELEXA [Concomitant]
     Dosage: 60MG DAILY (20 MG, 3 PILLS DAILY IN THE MORNING)
     Route: 048
  4. TRILEPTAL [Concomitant]
     Dosage: 300 MG, 1X/DAY FOR 4 DAYS
     Route: 048
  5. TRILEPTAL [Concomitant]
     Dosage: 300 MG, 2X/DAY
     Route: 048

REACTIONS (3)
  - Drug intolerance [Recovered/Resolved]
  - Lethargy [Recovered/Resolved]
  - Off label use [Recovered/Resolved]
